FAERS Safety Report 24092142 (Version 2)
Quarter: 2024Q3

REPORT INFORMATION
  Report Type: Spontaneous
  Country: FR (occurrence: FR)
  Receive Date: 20240715
  Receipt Date: 20240812
  Transmission Date: 20241016
  Serious: Yes (Hospitalization)
  Sender: MYLAN
  Company Number: None

PATIENT
  Age: 78 Year
  Sex: Female

DRUGS (36)
  1. PREDNISONE [Suspect]
     Active Substance: PREDNISONE
     Indication: Rheumatoid arthritis
     Dosage: 3 MILLIGRAM, QD
     Route: 048
     Dates: start: 2004
  2. METHOTREXATE [Suspect]
     Active Substance: METHOTREXATE
     Indication: Rheumatoid arthritis
     Dosage: 15 MILLIGRAM, QW
     Route: 058
     Dates: start: 2008, end: 202312
  3. OMEPRAZOLE [Suspect]
     Active Substance: OMEPRAZOLE
     Indication: Product used for unknown indication
     Dosage: 20 MILLIGRAM, QD (IN THE MORNING)
     Route: 065
     Dates: end: 2023
  4. VALGANCICLOVIR [Suspect]
     Active Substance: VALGANCICLOVIR
     Indication: Cytomegalovirus chorioretinitis
     Dosage: UNK
     Route: 048
     Dates: start: 20230929, end: 20231004
  5. TOCILIZUMAB [Suspect]
     Active Substance: TOCILIZUMAB
     Indication: Rheumatoid arthritis
     Dosage: 162 MILLIGRAM
     Route: 058
     Dates: start: 202301, end: 2023
  6. GANCICLOVIR [Suspect]
     Active Substance: GANCICLOVIR
     Indication: Cytomegalovirus chorioretinitis
     Dosage: UNK
     Route: 048
     Dates: start: 20230929, end: 20231004
  7. CLINDAMYCIN [Concomitant]
     Active Substance: CLINDAMYCIN
     Indication: Eye infection toxoplasmal
     Dosage: UNK
     Route: 065
     Dates: start: 20231004
  8. CLINDAMYCIN [Concomitant]
     Active Substance: CLINDAMYCIN
     Dosage: UNK
     Route: 065
     Dates: start: 20231010
  9. CLINDAMYCIN [Concomitant]
     Active Substance: CLINDAMYCIN
     Dosage: UNK
     Route: 065
     Dates: start: 20231023
  10. CLINDAMYCIN [Concomitant]
     Active Substance: CLINDAMYCIN
     Dosage: FOR WEAKLY POSITIVE PCR
     Route: 065
     Dates: start: 20240314
  11. Malocide [Concomitant]
     Dosage: UNK
     Route: 065
     Dates: start: 20231004, end: 20231116
  12. CORN OIL, OXIDIZED [Concomitant]
     Active Substance: CORN OIL, OXIDIZED
     Dosage: 40 MILLILITER FL
     Route: 065
     Dates: end: 2023
  13. NITROGLYCERIN [Concomitant]
     Active Substance: NITROGLYCERIN
     Dosage: 10 MILLIGRAM, QD (10 MG/24 H BEFORE MORNING)
     Route: 065
     Dates: end: 2023
  14. LEUCOVORIN CALCIUM [Concomitant]
     Active Substance: LEUCOVORIN CALCIUM
     Dosage: UNK
     Route: 065
     Dates: start: 20231004, end: 20231116
  15. DEXAMETHASONE [Concomitant]
     Active Substance: DEXAMETHASONE
     Indication: COVID-19
     Dosage: UNK
     Route: 065
     Dates: start: 20231205, end: 20231207
  16. INNOVAIR [Concomitant]
     Active Substance: BECLOMETHASONE DIPROPIONATE\FORMOTEROL
     Dosage: UNK, BID, 100/6: 2 INHALATIONS MORNING AND EVENING
     Route: 055
     Dates: end: 2023
  17. BACTRIM [Concomitant]
     Active Substance: SULFAMETHOXAZOLE\TRIMETHOPRIM
     Indication: Eye infection toxoplasmal
     Dosage: 1600 MILLIGRAM, Q2D (LONG-TERM PROPHYLAXIS)
     Route: 065
     Dates: start: 20231116, end: 20231218
  18. BACTRIM [Concomitant]
     Active Substance: SULFAMETHOXAZOLE\TRIMETHOPRIM
     Dosage: 1600 MILLIGRAM, Q2D (FOR WEAKLY POSITIVE PCR)
     Route: 065
     Dates: start: 20240314
  19. Celestene [Concomitant]
     Dosage: UNK
     Route: 065
     Dates: start: 20231004
  20. Celestene [Concomitant]
     Dosage: UNK
     Route: 065
     Dates: start: 20231010
  21. Celestene [Concomitant]
     Dosage: UNK
     Route: 065
     Dates: start: 20231023
  22. APIXABAN [Concomitant]
     Active Substance: APIXABAN
     Dosage: 1 DOSAGE FORM, BID (5 MG 1 TABLET MORNING AND EVENING)
     Route: 065
     Dates: end: 2023
  23. ABATACEPT [Concomitant]
     Active Substance: ABATACEPT
     Dosage: UNK
     Route: 065
     Dates: start: 202206, end: 202207
  24. PILOCARPINE HYDROCHLORIDE [Concomitant]
     Active Substance: PILOCARPINE HYDROCHLORIDE
     Dosage: 6 MILLIGRAM, TID (6 MG 3 X DAILY)
     Route: 065
     Dates: end: 2023
  25. ARAVA [Concomitant]
     Active Substance: LEFLUNOMIDE
     Dosage: UNK
     Route: 065
     Dates: start: 2005, end: 2008
  26. CALCIUM CARBONATE\CHOLECALCIFEROL [Concomitant]
     Active Substance: CALCIUM CARBONATE\CHOLECALCIFEROL
     Dosage: 1 DOSAGE FORM, BID (1 TABLET MORNING AND EVENING)
     Route: 065
     Dates: end: 2023
  27. CETIRIZINE [Concomitant]
     Active Substance: CETIRIZINE HYDROCHLORIDE
     Dosage: 10 MILLIGRAM, QD 910 MG 1 TABLET MORNING)
     Route: 065
     Dates: end: 2023
  28. FOLIC ACID [Concomitant]
     Active Substance: FOLIC ACID
     Dosage: 5 MILLIGRAM (5 MG 2 TABLETS ON WEDNESDAY)
     Route: 065
     Dates: end: 2023
  29. VALACYCLOVIR HYDROCHLORIDE [Concomitant]
     Active Substance: VALACYCLOVIR HYDROCHLORIDE
     Indication: Genital herpes
     Dosage: 500 MILLIGRAM, BID
     Route: 065
     Dates: start: 20231212, end: 20231217
  30. ROSUVASTATIN [Concomitant]
     Active Substance: ROSUVASTATIN\ROSUVASTATIN CALCIUM
     Dosage: 10 MILLIGRAM, QD (1 TABLET IN THE EVENING)
     Route: 065
     Dates: end: 2023
  31. FILGOTINIB [Concomitant]
     Active Substance: FILGOTINIB
     Dosage: FOR 4 MONTHS IN 2022
     Route: 065
     Dates: start: 2022
  32. VERAPAMIL [Concomitant]
     Active Substance: VERAPAMIL HYDROCHLORIDE
     Dosage: 1 DOSAGE FORM, BID (1 TABLET MORNING AND EVENING)
     Route: 065
     Dates: end: 2023
  33. MONTELUKAST [Concomitant]
     Active Substance: MONTELUKAST SODIUM
     Dosage: 10 MILLIGRAM, QD (10 MG 1 TABLET IN THE EVENING)
     Route: 065
     Dates: end: 2023
  34. ZITHROMAX [Concomitant]
     Active Substance: AZITHROMYCIN DIHYDRATE
     Dosage: UNK
     Route: 065
     Dates: start: 20231004, end: 20231116
  35. TIOTROPIUM [Concomitant]
     Active Substance: TIOTROPIUM
     Dosage: 2.5 MICROGRAM (2.5MCG/DOSE 2 PUFFS IN THE MORNING)
     Route: 065
     Dates: end: 2023
  36. ACETAMINOPHEN [Concomitant]
     Active Substance: ACETAMINOPHEN
     Dosage: 500 MILLIGRAM, PRN (500 MG 3/DAY IF PAIN)
     Route: 065
     Dates: end: 2023

REACTIONS (1)
  - Alveolar proteinosis [Not Recovered/Not Resolved]

NARRATIVE: CASE EVENT DATE: 20231101
